FAERS Safety Report 8133244-6 (Version None)
Quarter: 2012Q1

REPORT INFORMATION
  Report Type: 
  Country: None (occurrence: None)
  Receive Date: 20120207
  Receipt Date: 20120127
  Transmission Date: 20120608
  Serious: Yes (Hospitalization)
  Sender: FDA-Public Use
  Company Number: 2012AP000247

PATIENT
  Age: 23 Year
  Sex: Male

DRUGS (8)
  1. LYSERGIDE (LYSERGIDE) [Concomitant]
  2. RISPERIDONE [Suspect]
     Indication: SCHIZOPHRENIFORM DISORDER
     Dosage: 4 MG;QD
     Route: 048
  3. ZUCLOPENTHIXOL ACETATE (ZUCLOPENTHIXOL ACETATE) [Suspect]
     Indication: PSYCHOTIC DISORDER
     Dosage: 100 MG; QOD
  4. PROMETHAZINE [Concomitant]
  5. CANNABIS SATIVA (CANNABIS SATIVA) [Concomitant]
  6. METHOTRIMEPRAZINE (METHOTRIMEPRAZINE) [Concomitant]
  7. PSILOCYBINE (PSILOCYBINE) [Concomitant]
  8. BIPERIDEN HYDROCHLORIDE TAB [Concomitant]

REACTIONS (10)
  - ANXIETY [None]
  - HYPOKINESIA [None]
  - MASKED FACIES [None]
  - CONDITION AGGRAVATED [None]
  - DYSTONIA [None]
  - HYPOCHONDRIASIS [None]
  - PSYCHOTIC DISORDER [None]
  - TREMOR [None]
  - WITHDRAWAL SYNDROME [None]
  - DELUSION [None]
